FAERS Safety Report 23047833 (Version 2)
Quarter: 2023Q4

REPORT INFORMATION
  Report Type: Spontaneous
  Country: US (occurrence: US)
  Receive Date: 20231010
  Receipt Date: 20231107
  Transmission Date: 20240110
  Serious: Yes (Death, Disabling, Other)
  Sender: FDA-Public Use
  Company Number: US-OPELLA-2023OHG010556

PATIENT
  Sex: Male

DRUGS (2)
  1. TALC [Suspect]
     Active Substance: TALC
     Indication: Product used for unknown indication
  2. DESENEX NOS [Suspect]
     Active Substance: CLOTRIMAZOLE OR MICONAZOLE NITRATE

REACTIONS (7)
  - Mesothelioma malignant [Fatal]
  - Exposure to chemical pollution [Fatal]
  - Anxiety [Fatal]
  - Pain [Fatal]
  - Disability [Fatal]
  - Deformity [Fatal]
  - Loss of personal independence in daily activities [Fatal]

NARRATIVE: CASE EVENT DATE: 20220919
